FAERS Safety Report 23814562 (Version 2)
Quarter: 2024Q2

REPORT INFORMATION
  Report Type: Spontaneous
  Country: GR (occurrence: GR)
  Receive Date: 20240503
  Receipt Date: 20240523
  Transmission Date: 20240716
  Serious: Yes (Death, Hospitalization)
  Sender: FDA-Public Use
  Company Number: GR-JNJFOC-20240449782

PATIENT
  Age: 45 Year
  Sex: Female

DRUGS (5)
  1. DEXAMETHASONE [Suspect]
     Active Substance: DEXAMETHASONE
     Indication: Plasma cell myeloma
     Route: 065
  2. DARZALEX [Suspect]
     Active Substance: DARATUMUMAB
     Indication: Plasma cell myeloma
     Route: 065
  3. LENALIDOMIDE [Suspect]
     Active Substance: LENALIDOMIDE
     Indication: Plasma cell myeloma
     Route: 065
  4. VELCADE [Suspect]
     Active Substance: BORTEZOMIB
     Indication: Plasma cell myeloma
     Route: 065
  5. OSELTAMIVIR [Concomitant]
     Active Substance: OSELTAMIVIR
     Indication: Antiviral prophylaxis
     Route: 065

REACTIONS (7)
  - Respiratory failure [Unknown]
  - Pulmonary haemorrhage [Fatal]
  - Pancytopenia [Unknown]
  - Disseminated intravascular coagulation [Unknown]
  - Acinetobacter infection [Unknown]
  - H1N1 influenza [Unknown]
  - Intentional product use issue [Unknown]
